FAERS Safety Report 5275780-6 (Version None)
Quarter: 2007Q1

REPORT INFORMATION
  Report Type: 
  Country: None (occurrence: None)
  Receive Date: 20070326
  Receipt Date: 20070316
  Transmission Date: 20070707
  Serious: Yes (Hospitalization)
  Sender: FDA-Public Use
  Company Number: FR-GLAXOSMITHKLINE-B0462236A

PATIENT
  Age: 55 Year
  Sex: Male

DRUGS (8)
  1. KIVEXA [Suspect]
     Route: 048
     Dates: start: 20061024, end: 20070130
  2. VIREAD [Suspect]
     Route: 048
     Dates: start: 20061109, end: 20070130
  3. TRIATEC [Concomitant]
     Route: 065
  4. PLAVIX [Concomitant]
     Route: 065
  5. CELECTOL [Concomitant]
     Route: 065
  6. LASIX [Concomitant]
     Route: 065
  7. ALDACTONE [Concomitant]
     Route: 065
  8. GABAPENTIN [Concomitant]
     Route: 065

REACTIONS (1)
  - HALLUCINATION, VISUAL [None]
